FAERS Safety Report 7767148-5 (Version None)
Quarter: 2011Q3

REPORT INFORMATION
  Report Type: 
  Country: None (occurrence: None)
  Receive Date: 20110922
  Receipt Date: 20101118
  Transmission Date: 20111222
  Serious: No
  Sender: FDA-Public Use
  Company Number: US-ASTRAZENECA-2010SE54985

PATIENT
  Age: 27 Year
  Sex: Female
  Weight: 83.9 kg

DRUGS (2)
  1. SEROQUEL [Suspect]
     Indication: DEPRESSED MOOD
     Dosage: 100 MG 1/2 TABLET AT NIGHT
     Route: 048
     Dates: start: 20090101
  2. SEROQUEL [Suspect]
     Indication: SLEEP DISORDER
     Dosage: 100 MG 1/2 TABLET AT NIGHT
     Route: 048
     Dates: start: 20090101

REACTIONS (1)
  - SINUSITIS [None]
